FAERS Safety Report 10041249 (Version 1)
Quarter: 2014Q1

REPORT INFORMATION
  Report Type: Spontaneous
  Country: US (occurrence: None)
  Receive Date: 20140326
  Receipt Date: 20140326
  Transmission Date: 20141002
  Serious: Yes (Hospitalization)
  Sender: FDA-Public Use
  Company Number: None

PATIENT
  Age: 14 Year
  Sex: Female
  Weight: 52.6 kg

DRUGS (1)
  1. ONCASPAR [Suspect]
     Dosage: 3825 UNIT
     Dates: end: 20140303

REACTIONS (16)
  - Extradural haematoma [None]
  - Haemorrhage intracranial [None]
  - Brain midline shift [None]
  - Central nervous system infection [None]
  - Bacillus infection [None]
  - Immunodeficiency [None]
  - Toxicity to various agents [None]
  - Hepatic failure [None]
  - Oedema [None]
  - Pleural effusion [None]
  - Renal failure acute [None]
  - Ileus [None]
  - Hypernatraemia [None]
  - Blood osmolarity increased [None]
  - Coagulopathy [None]
  - Septic shock [None]
